FAERS Safety Report 5302329-1 (Version None)
Quarter: 2007Q2

REPORT INFORMATION
  Report Type: 
  Country: None (occurrence: None)
  Receive Date: 20070405
  Receipt Date: 20070323
  Transmission Date: 20071010
  Serious: Yes (Hospitalization)
  Sender: FDA-Public Use
  Company Number: 200710163BYL

PATIENT
  Age: 48 Year
  Sex: Male
  Weight: 69.5 kg

DRUGS (83)
  1. KOGENATE FS [Suspect]
     Indication: ABDOMINAL HAEMATOMA
     Dosage: SEE IMAGE
     Route: 042
     Dates: start: 20070131, end: 20070213
  2. KOGENATE FS [Suspect]
     Indication: CHOLECYSTECTOMY
     Dosage: SEE IMAGE
     Route: 042
     Dates: start: 20070131, end: 20070213
  3. KOGENATE FS [Suspect]
     Indication: FACTOR VIII DEFICIENCY
     Dosage: SEE IMAGE
     Route: 042
     Dates: start: 20070131, end: 20070213
  4. KOGENATE FS [Suspect]
     Indication: ABDOMINAL HAEMATOMA
     Dosage: SEE IMAGE
     Route: 042
     Dates: start: 20070131, end: 20070213
  5. KOGENATE FS [Suspect]
     Indication: CHOLECYSTECTOMY
     Dosage: SEE IMAGE
     Route: 042
     Dates: start: 20070131, end: 20070213
  6. KOGENATE FS [Suspect]
     Indication: FACTOR VIII DEFICIENCY
     Dosage: SEE IMAGE
     Route: 042
     Dates: start: 20070131, end: 20070213
  7. KOGENATE FS [Suspect]
     Indication: ABDOMINAL HAEMATOMA
     Dosage: SEE IMAGE
     Route: 042
     Dates: start: 20070131, end: 20070213
  8. KOGENATE FS [Suspect]
     Indication: CHOLECYSTECTOMY
     Dosage: SEE IMAGE
     Route: 042
     Dates: start: 20070131, end: 20070213
  9. KOGENATE FS [Suspect]
     Indication: FACTOR VIII DEFICIENCY
     Dosage: SEE IMAGE
     Route: 042
     Dates: start: 20070131, end: 20070213
  10. KOGENATE FS [Suspect]
     Indication: ABDOMINAL HAEMATOMA
     Dosage: SEE IMAGE
     Route: 042
     Dates: start: 20070131, end: 20070213
  11. KOGENATE FS [Suspect]
     Indication: CHOLECYSTECTOMY
     Dosage: SEE IMAGE
     Route: 042
     Dates: start: 20070131, end: 20070213
  12. KOGENATE FS [Suspect]
     Indication: FACTOR VIII DEFICIENCY
     Dosage: SEE IMAGE
     Route: 042
     Dates: start: 20070131, end: 20070213
  13. KOGENATE FS [Suspect]
     Indication: ABDOMINAL HAEMATOMA
     Dosage: SEE IMAGE
     Route: 042
     Dates: start: 20070131
  14. KOGENATE FS [Suspect]
     Indication: CHOLECYSTECTOMY
     Dosage: SEE IMAGE
     Route: 042
     Dates: start: 20070131
  15. KOGENATE FS [Suspect]
     Indication: FACTOR VIII DEFICIENCY
     Dosage: SEE IMAGE
     Route: 042
     Dates: start: 20070131
  16. KOGENATE FS [Suspect]
     Indication: ABDOMINAL HAEMATOMA
     Dosage: SEE IMAGE
     Route: 042
     Dates: start: 20070201
  17. KOGENATE FS [Suspect]
     Indication: CHOLECYSTECTOMY
     Dosage: SEE IMAGE
     Route: 042
     Dates: start: 20070201
  18. KOGENATE FS [Suspect]
     Indication: FACTOR VIII DEFICIENCY
     Dosage: SEE IMAGE
     Route: 042
     Dates: start: 20070201
  19. KOGENATE FS [Suspect]
     Indication: ABDOMINAL HAEMATOMA
     Dosage: SEE IMAGE
     Route: 042
     Dates: start: 20070201
  20. KOGENATE FS [Suspect]
     Indication: CHOLECYSTECTOMY
     Dosage: SEE IMAGE
     Route: 042
     Dates: start: 20070201
  21. KOGENATE FS [Suspect]
     Indication: FACTOR VIII DEFICIENCY
     Dosage: SEE IMAGE
     Route: 042
     Dates: start: 20070201
  22. KOGENATE FS [Suspect]
     Indication: ABDOMINAL HAEMATOMA
     Dosage: SEE IMAGE
     Route: 042
     Dates: start: 20070201
  23. KOGENATE FS [Suspect]
     Indication: CHOLECYSTECTOMY
     Dosage: SEE IMAGE
     Route: 042
     Dates: start: 20070201
  24. KOGENATE FS [Suspect]
     Indication: FACTOR VIII DEFICIENCY
     Dosage: SEE IMAGE
     Route: 042
     Dates: start: 20070201
  25. KOGENATE FS [Suspect]
     Indication: ABDOMINAL HAEMATOMA
     Dosage: SEE IMAGE
     Route: 042
     Dates: start: 20070201
  26. KOGENATE FS [Suspect]
     Indication: CHOLECYSTECTOMY
     Dosage: SEE IMAGE
     Route: 042
     Dates: start: 20070201
  27. KOGENATE FS [Suspect]
     Indication: FACTOR VIII DEFICIENCY
     Dosage: SEE IMAGE
     Route: 042
     Dates: start: 20070201
  28. KOGENATE FS [Suspect]
     Indication: ABDOMINAL HAEMATOMA
     Dosage: SEE IMAGE
     Route: 042
     Dates: start: 20070201
  29. KOGENATE FS [Suspect]
     Indication: CHOLECYSTECTOMY
     Dosage: SEE IMAGE
     Route: 042
     Dates: start: 20070201
  30. KOGENATE FS [Suspect]
     Indication: FACTOR VIII DEFICIENCY
     Dosage: SEE IMAGE
     Route: 042
     Dates: start: 20070201
  31. KOGENATE FS [Suspect]
     Indication: ABDOMINAL HAEMATOMA
     Dosage: SEE IMAGE
     Route: 042
     Dates: start: 20070203
  32. KOGENATE FS [Suspect]
     Indication: CHOLECYSTECTOMY
     Dosage: SEE IMAGE
     Route: 042
     Dates: start: 20070203
  33. KOGENATE FS [Suspect]
     Indication: FACTOR VIII DEFICIENCY
     Dosage: SEE IMAGE
     Route: 042
     Dates: start: 20070203
  34. KOGENATE FS [Suspect]
     Indication: ABDOMINAL HAEMATOMA
     Dosage: SEE IMAGE
     Route: 042
     Dates: start: 20070203
  35. KOGENATE FS [Suspect]
     Indication: CHOLECYSTECTOMY
     Dosage: SEE IMAGE
     Route: 042
     Dates: start: 20070203
  36. KOGENATE FS [Suspect]
     Indication: FACTOR VIII DEFICIENCY
     Dosage: SEE IMAGE
     Route: 042
     Dates: start: 20070203
  37. KOGENATE FS [Suspect]
     Indication: ABDOMINAL HAEMATOMA
     Dosage: SEE IMAGE
     Route: 042
     Dates: start: 20070203
  38. KOGENATE FS [Suspect]
     Indication: CHOLECYSTECTOMY
     Dosage: SEE IMAGE
     Route: 042
     Dates: start: 20070203
  39. KOGENATE FS [Suspect]
     Indication: FACTOR VIII DEFICIENCY
     Dosage: SEE IMAGE
     Route: 042
     Dates: start: 20070203
  40. KOGENATE FS [Suspect]
     Indication: ABDOMINAL HAEMATOMA
     Dosage: SEE IMAGE
     Route: 042
     Dates: start: 20070203
  41. KOGENATE FS [Suspect]
     Indication: CHOLECYSTECTOMY
     Dosage: SEE IMAGE
     Route: 042
     Dates: start: 20070203
  42. KOGENATE FS [Suspect]
     Indication: FACTOR VIII DEFICIENCY
     Dosage: SEE IMAGE
     Route: 042
     Dates: start: 20070203
  43. KOGENATE FS [Suspect]
     Indication: ABDOMINAL HAEMATOMA
     Dosage: SEE IMAGE
     Route: 042
     Dates: start: 20070204
  44. KOGENATE FS [Suspect]
     Indication: CHOLECYSTECTOMY
     Dosage: SEE IMAGE
     Route: 042
     Dates: start: 20070204
  45. KOGENATE FS [Suspect]
     Indication: FACTOR VIII DEFICIENCY
     Dosage: SEE IMAGE
     Route: 042
     Dates: start: 20070204
  46. KOGENATE FS [Suspect]
     Indication: ABDOMINAL HAEMATOMA
     Dosage: SEE IMAGE
     Route: 042
     Dates: start: 20070204
  47. KOGENATE FS [Suspect]
     Indication: CHOLECYSTECTOMY
     Dosage: SEE IMAGE
     Route: 042
     Dates: start: 20070204
  48. KOGENATE FS [Suspect]
     Indication: FACTOR VIII DEFICIENCY
     Dosage: SEE IMAGE
     Route: 042
     Dates: start: 20070204
  49. KOGENATE FS [Suspect]
     Indication: ABDOMINAL HAEMATOMA
     Dosage: SEE IMAGE
     Route: 042
     Dates: start: 20070204
  50. KOGENATE FS [Suspect]
     Indication: CHOLECYSTECTOMY
     Dosage: SEE IMAGE
     Route: 042
     Dates: start: 20070204
  51. KOGENATE FS [Suspect]
     Indication: FACTOR VIII DEFICIENCY
     Dosage: SEE IMAGE
     Route: 042
     Dates: start: 20070204
  52. KOGENATE FS [Suspect]
     Indication: ABDOMINAL HAEMATOMA
     Dosage: SEE IMAGE
     Route: 042
     Dates: start: 20070204
  53. KOGENATE FS [Suspect]
     Indication: CHOLECYSTECTOMY
     Dosage: SEE IMAGE
     Route: 042
     Dates: start: 20070204
  54. KOGENATE FS [Suspect]
     Indication: FACTOR VIII DEFICIENCY
     Dosage: SEE IMAGE
     Route: 042
     Dates: start: 20070204
  55. KOGENATE FS [Suspect]
     Indication: ABDOMINAL HAEMATOMA
     Dosage: SEE IMAGE
     Route: 042
     Dates: start: 20070204
  56. KOGENATE FS [Suspect]
     Indication: CHOLECYSTECTOMY
     Dosage: SEE IMAGE
     Route: 042
     Dates: start: 20070204
  57. KOGENATE FS [Suspect]
     Indication: FACTOR VIII DEFICIENCY
     Dosage: SEE IMAGE
     Route: 042
     Dates: start: 20070204
  58. KOGENATE FS [Suspect]
     Indication: ABDOMINAL HAEMATOMA
     Dosage: SEE IMAGE
     Route: 042
     Dates: start: 20070216
  59. KOGENATE FS [Suspect]
     Indication: CHOLECYSTECTOMY
     Dosage: SEE IMAGE
     Route: 042
     Dates: start: 20070216
  60. KOGENATE FS [Suspect]
     Indication: FACTOR VIII DEFICIENCY
     Dosage: SEE IMAGE
     Route: 042
     Dates: start: 20070216
  61. KOGENATE FS [Suspect]
  62. KOGENATE FS [Suspect]
  63. KOGENATE FS [Suspect]
  64. AMICALIQ [Concomitant]
  65. MEROPEN [Concomitant]
  66. ADONA [Concomitant]
  67. TRANSAMIN [Concomitant]
  68. TIENAM [Concomitant]
  69. GASTER [Concomitant]
  70. LASIX [Concomitant]
  71. FESIN [Concomitant]
  72. CLARUTE [Concomitant]
  73. RAINCLUT NICHIIKO [Concomitant]
  74. KAYTWO N [Concomitant]
  75. PENTAZOCINE LACTATE [Concomitant]
  76. ATARAX [Concomitant]
  77. FENTANYL [Concomitant]
  78. ROPION [Concomitant]
  79. TAZOCIN [Concomitant]
  80. VITACIMIN [Concomitant]
  81. RED BLOOD CELLS [Concomitant]
  82. FRESH FROZEN PLASMA [Concomitant]
  83. ALBUMIN CUTTER [Concomitant]

REACTIONS (6)
  - C-REACTIVE PROTEIN INCREASED [None]
  - DRUG INTERACTION [None]
  - INFLAMMATION [None]
  - PYREXIA [None]
  - WHITE BLOOD CELL COUNT INCREASED [None]
  - WOUND INFECTION [None]
